FAERS Safety Report 8063928-X (Version None)
Quarter: 2012Q1

REPORT INFORMATION
  Report Type: 
  Country: None (occurrence: None)
  Receive Date: 20120123
  Receipt Date: 20120113
  Transmission Date: 20120608
  Serious: Yes (Hospitalization, Other)
  Sender: FDA-Public Use
  Company Number: FR-EISAI INC-E2080-00448-SPO-FR

PATIENT
  Sex: Female

DRUGS (8)
  1. KEPPRA [Concomitant]
     Dosage: UNKNOWN
     Route: 048
     Dates: start: 20111210
  2. INOVELON [Suspect]
     Dosage: 400 MG DAILY
     Route: 048
     Dates: start: 20111201
  3. TRILEPTAL [Concomitant]
     Dosage: DOSE REDUCED
     Route: 048
     Dates: start: 20111201
  4. INOVELON [Suspect]
     Dosage: 800 MG DAILY
     Route: 048
     Dates: start: 20111201, end: 20111201
  5. TOPIRAMATE [Concomitant]
     Dosage: DOSE REDUCED
     Dates: start: 20111201
  6. INOVELON [Suspect]
     Indication: EPILEPSY
     Route: 048
     Dates: start: 20111101, end: 20111210
  7. TRILEPTAL [Concomitant]
     Dosage: UNKNOWN
     Route: 048
     Dates: end: 20111201
  8. TOPIRAMATE [Concomitant]
     Dosage: UNKNOWN
     Route: 048
     Dates: end: 20111201

REACTIONS (4)
  - WEIGHT DECREASED [None]
  - NAUSEA [None]
  - VOMITING [None]
  - STATUS EPILEPTICUS [None]
